FAERS Safety Report 20667284 (Version 2)
Quarter: 2022Q2

REPORT INFORMATION
  Report Type: Spontaneous
  Country: US (occurrence: US)
  Receive Date: 20220404
  Receipt Date: 20220524
  Transmission Date: 20220720
  Serious: Yes (Other)
  Sender: FDA-Public Use
  Company Number: US-JNJFOC-20220361775

PATIENT
  Age: 8 Year
  Sex: Male

DRUGS (1)
  1. BENADRYL [Suspect]
     Active Substance: DIPHENHYDRAMINE HYDROCHLORIDE
     Indication: Product used for unknown indication
     Dosage: ~60 A DAY
     Route: 065

REACTIONS (3)
  - Drug abuse [Unknown]
  - Wrong technique in product usage process [Unknown]
  - Overdose [Unknown]
